FAERS Safety Report 6716229-3 (Version None)
Quarter: 2010Q2

REPORT INFORMATION
  Report Type: 
  Country: None (occurrence: None)
  Receive Date: 20100507
  Receipt Date: 20100428
  Transmission Date: 20101027
  Serious: Yes (Other)
  Sender: FDA-Public Use
  Company Number: DE-JNJFOC-20100408021

PATIENT

DRUGS (2)
  1. REMICADE [Suspect]
     Indication: INFLAMMATION
     Route: 042
  2. REMICADE [Suspect]
     Indication: GASTROINTESTINAL DISORDER
     Route: 042

REACTIONS (1)
  - INTESTINAL STENOSIS [None]
